FAERS Safety Report 4870789-6 (Version None)
Quarter: 2006Q1

REPORT INFORMATION
  Report Type: 
  Country: None (occurrence: None)
  Receive Date: 20060103
  Receipt Date: 20050930
  Transmission Date: 20060701
  Serious: Yes (Hospitalization, Disabling)
  Sender: FDA-Public Use
  Company Number: US-MERCK-0510USA01928

PATIENT
  Age: 48 Year
  Sex: Male
  Weight: 100 kg

DRUGS (8)
  1. VIOXX [Suspect]
     Indication: RHEUMATOID ARTHRITIS
     Route: 048
     Dates: start: 20010601
  2. VIOXX [Suspect]
     Route: 048
     Dates: end: 20040601
  3. VIOXX [Suspect]
     Indication: ARTHRITIS
     Route: 048
     Dates: start: 20010601
  4. VIOXX [Suspect]
     Route: 048
     Dates: end: 20040601
  5. HYDROCODONE BITARTRATE [Concomitant]
     Route: 065
  6. CIMETIDINE [Concomitant]
     Route: 065
  7. ZOCOR [Concomitant]
     Route: 048
  8. ACCUPRIL [Concomitant]
     Route: 065

REACTIONS (9)
  - ANGINA PECTORIS [None]
  - ARTERIOSCLEROSIS CORONARY ARTERY [None]
  - CORONARY ARTERY DISEASE [None]
  - HYPERLIPIDAEMIA [None]
  - HYPERTRIGLYCERIDAEMIA [None]
  - INSOMNIA [None]
  - MYOCARDIAL INFARCTION [None]
  - OSTEOPENIA [None]
  - SCOTOMA [None]
